FAERS Safety Report 8874219 (Version 2)
Quarter: 2012Q4

REPORT INFORMATION
  Report Type: 
  Country: AE (occurrence: AE)
  Receive Date: 20121030
  Receipt Date: 20121218
  Transmission Date: 20130627
  Serious: Yes (Hospitalization)
  Sender: FDA-Public Use
  Company Number: AE-ELI_LILLY_AND_COMPANY-AE201209007400

PATIENT
  Age: 47 Year
  Sex: Female

DRUGS (10)
  1. BYETTA [Suspect]
     Indication: TYPE 2 DIABETES MELLITUS
     Dosage: 5 ug, bid
     Route: 058
     Dates: start: 20120913, end: 20120920
  2. ATORVASTATIN [Concomitant]
     Dosage: 10 mg, qd
  3. AMLODIPINE [Concomitant]
     Dosage: 5 mg, qd
  4. VITAMIN D [Concomitant]
     Dosage: UNK, weekly (1/W)
  5. METFORMIN [Concomitant]
     Dosage: 850 mg, tid
  6. IRON [Concomitant]
     Dosage: UNK, qd
  7. OMEGA 3 [Concomitant]
     Dosage: UNK, qd
  8. ASPIRIN [Concomitant]
     Indication: PROPHYLAXIS
     Dosage: 100 mg, qd
  9. DIAMICRON [Concomitant]
     Indication: TYPE 2 DIABETES MELLITUS
     Dosage: 120 mg, qd
  10. ATACAND [Concomitant]
     Indication: HYPERTENSION
     Dosage: 16 mg, qd

REACTIONS (7)
  - Lactic acidosis [Recovered/Resolved]
  - Renal failure acute [Recovered/Resolved]
  - Nausea [Recovered/Resolved]
  - Vomiting [Recovered/Resolved]
  - Diarrhoea [Recovered/Resolved]
  - Dehydration [Recovered/Resolved]
  - Pneumonia [Recovered/Resolved]
